FAERS Safety Report 14151599 (Version 1)
Quarter: 2017Q4

REPORT INFORMATION
  Report Type: Spontaneous
  Country: US (occurrence: None)
  Receive Date: 20171101
  Receipt Date: 20171101
  Transmission Date: 20180321
  Serious: Yes (Life-Threatening, Hospitalization)
  Sender: FDA-Public Use
  Company Number: None

PATIENT
  Age: 71 Year
  Sex: Male
  Weight: 72.57 kg

DRUGS (2)
  1. PREDNISONE. [Suspect]
     Active Substance: PREDNISONE
     Indication: CHRONIC OBSTRUCTIVE PULMONARY DISEASE
     Route: 048
     Dates: start: 20170927, end: 20171001
  2. PREDNISONE. [Suspect]
     Active Substance: PREDNISONE
     Indication: UPPER RESPIRATORY TRACT INFECTION
     Route: 048
     Dates: start: 20170927, end: 20171001

REACTIONS (2)
  - Intentional overdose [None]
  - Suicide attempt [None]

NARRATIVE: CASE EVENT DATE: 20171001
